FAERS Safety Report 22371132 (Version 3)
Quarter: 2025Q1

REPORT INFORMATION
  Report Type: Spontaneous
  Country: US (occurrence: US)
  Receive Date: 20230526
  Receipt Date: 20250121
  Transmission Date: 20250409
  Serious: Yes (Hospitalization, Other)
  Sender: BRISTOL-MYERS SQUIBB COMPANY
  Company Number: US-BRISTOL-MYERS SQUIBB COMPANY-2023-069585

PATIENT
  Age: 41 Year
  Sex: Male

DRUGS (3)
  1. THALOMID [Suspect]
     Active Substance: THALIDOMIDE
     Indication: Plasma cell myeloma
     Dosage: STRENGTH 100MG
     Route: 048
     Dates: start: 202301
  2. THALOMID [Suspect]
     Active Substance: THALIDOMIDE
     Indication: Lepromatous leprosy
     Route: 048
     Dates: start: 202302
  3. THALOMID [Suspect]
     Active Substance: THALIDOMIDE

REACTIONS (8)
  - Dizziness [Unknown]
  - Agitation [Unknown]
  - Chest pain [Unknown]
  - Chest discomfort [Unknown]
  - Somnolence [Unknown]
  - Pain in extremity [Unknown]
  - Thrombosis [Unknown]
  - Palpitations [Unknown]

NARRATIVE: CASE EVENT DATE: 20240101
